FAERS Safety Report 4970399-6 (Version None)
Quarter: 2006Q2

REPORT INFORMATION
  Report Type: 
  Country: None (occurrence: None)
  Receive Date: 20060412
  Receipt Date: 20060306
  Transmission Date: 20061013
  Serious: Yes (Congenital Anomaly)
  Sender: FDA-Public Use
  Company Number: NL-GLAXOSMITHKLINE-B0415520A

PATIENT
  Sex: Male

DRUGS (2)
  1. LANVIS [Suspect]
     Dosage: 40MG PER DAY
     Dates: start: 20020101
  2. PREDNISOLONE [Concomitant]

REACTIONS (2)
  - DRUG EXPOSURE DURING PREGNANCY [None]
  - REFLUX OESOPHAGITIS [None]
